FAERS Safety Report 8829609 (Version 1)
Quarter: 2012Q4

REPORT INFORMATION
  Report Type: Spontaneous
  Country: US (occurrence: None)
  Receive Date: 20121005
  Receipt Date: 20121005
  Transmission Date: 20130627
  Serious: Yes (Other)
  Sender: FDA-Public Use
  Company Number: None

PATIENT
  Age: 64 Year
  Sex: Female

DRUGS (1)
  1. AMPYRA [Suspect]
     Indication: MULTIPLE SCLEROSIS
     Dosage: 10 mg 1 every 12 hours, oral
     Route: 048
     Dates: start: 20120928, end: 20121003

REACTIONS (7)
  - Headache [None]
  - Constipation [None]
  - Insomnia [None]
  - Panic attack [None]
  - Chest discomfort [None]
  - Muscular weakness [None]
  - Hyperhidrosis [None]
